FAERS Safety Report 11834078 (Version 1)
Quarter: 2015Q4

REPORT INFORMATION
  Report Type: Report from Study
  Country: US (occurrence: US)
  Receive Date: 20151214
  Receipt Date: 20151214
  Transmission Date: 20160305
  Serious: Yes (Other)
  Sender: FDA-Public Use
  Company Number: US-EMD SERONO-7226617

PATIENT
  Sex: Female

DRUGS (2)
  1. REBIF [Suspect]
     Active Substance: INTERFERON BETA-1A
     Indication: PRODUCT USED FOR UNKNOWN INDICATION
     Route: 058
     Dates: start: 20041217, end: 20121220
  2. REBIF [Suspect]
     Active Substance: INTERFERON BETA-1A
     Route: 058
     Dates: start: 20140404

REACTIONS (6)
  - Large for dates baby [Unknown]
  - Live birth [Recovered/Resolved]
  - Breech presentation [Recovered/Resolved]
  - Cholestasis of pregnancy [Unknown]
  - Maternal exposure timing unspecified [Recovered/Resolved]
  - Amniotic fluid volume increased [Unknown]
